FAERS Safety Report 8907910 (Version 1)
Quarter: 2012Q4

REPORT INFORMATION
  Report Type: 
  Country: KP (occurrence: KP)
  Receive Date: 20121113
  Receipt Date: 20121113
  Transmission Date: 20130627
  Serious: Yes (Other)
  Sender: FDA-Public Use
  Company Number: KP-WATSON-2012-19430

PATIENT
  Age: 67 Year
  Sex: Male

DRUGS (4)
  1. PREDNISONE (UNKNOWN) [Suspect]
     Indication: EXTRANODAL MARGINAL ZONE B-CELL LYMPHOMA (MALT TYPE)
     Dosage: 60 mg/mm days 105
     Route: 048
  2. CYCLOPHOSPHAMIDE [Suspect]
     Indication: EXTRANODAL MARGINAL ZONE B-CELL LYMPHOMA (MALT TYPE)
     Dosage: 750 mg/mm day 1
     Route: 042
  3. VINCRISTINE [Suspect]
     Indication: EXTRANODAL MARGINAL ZONE B-CELL LYMPHOMA (MALT TYPE)
     Dosage: 1.4 mg/mm day 1
     Route: 042
  4. ADRIAMYCIN                         /00330901/ [Suspect]
     Indication: EXTRANODAL MARGINAL ZONE B-CELL LYMPHOMA (MALT TYPE)
     Dosage: 50 mg/mm day 1
     Route: 042

REACTIONS (1)
  - Neuropathy peripheral [Recovered/Resolved]
